FAERS Safety Report 23011896 (Version 2)
Quarter: 2023Q4

REPORT INFORMATION
  Report Type: Spontaneous
  Country: TR (occurrence: TR)
  Receive Date: 20230929
  Receipt Date: 20231003
  Transmission Date: 20240110
  Serious: Yes (Death)
  Sender: FDA-Public Use
  Company Number: TR-BIOGEN-2023BI01228798

PATIENT

DRUGS (2)
  1. SPINRAZA [Suspect]
     Active Substance: NUSINERSEN
     Indication: Product used for unknown indication
     Route: 050
  2. RISDIPLAM [Suspect]
     Active Substance: RISDIPLAM
     Indication: Product used for unknown indication
     Route: 050

REACTIONS (2)
  - Death [Fatal]
  - General physical health deterioration [Unknown]
